FAERS Safety Report 10160390 (Version 1)
Quarter: 2014Q2

REPORT INFORMATION
  Report Type: Spontaneous
  Country: US (occurrence: None)
  Receive Date: 20140507
  Receipt Date: 20140507
  Transmission Date: 20141212
  Serious: No
  Sender: FDA-Public Use
  Company Number: None

PATIENT
  Age: 54 Year
  Sex: Male
  Weight: 77.11 kg

DRUGS (2)
  1. TAMSULOSIN HCL [Suspect]
     Indication: ABDOMINAL PAIN
     Dosage: 0.4 MG 30 ONCE DAILY 30 MINUTES AFTER SAME MEAL. MOUTH
     Route: 048
     Dates: start: 20140407, end: 20140415
  2. TAMSULOSIN HCL [Suspect]
     Dosage: 0.4 MG 30 ONCE DAILY 30 MINUTES AFTER SAME MEAL. MOUTH
     Route: 048
     Dates: start: 20140407, end: 20140415

REACTIONS (3)
  - Product substitution issue [None]
  - Abdominal pain [None]
  - Condition aggravated [None]
